FAERS Safety Report 9630707 (Version 1)
Quarter: 2013Q4

REPORT INFORMATION
  Report Type: Spontaneous
  Country: HU (occurrence: HU)
  Receive Date: 20131018
  Receipt Date: 20131018
  Transmission Date: 20140711
  Serious: Yes (Death)
  Sender: FDA-Public Use
  Company Number: HU-ROCHE-1289714

PATIENT
  Age: 60 Year
  Sex: Male

DRUGS (5)
  1. ACTILYSE [Suspect]
     Indication: ISCHAEMIC STROKE
     Dosage: 91.5 MG
     Route: 042
     Dates: start: 20130807, end: 20130807
  2. CALCIUM CHLORIDE DIHYDRATE [Concomitant]
     Indication: FLUID REPLACEMENT
     Dosage: 7200 ML
     Route: 041
     Dates: start: 20130807, end: 20130807
  3. POTASSIUM CHLORIDE [Concomitant]
     Route: 041
  4. SODIUM CHLORIDE [Concomitant]
     Route: 041
  5. QUAMATEL [Concomitant]
     Indication: GASTROOESOPHAGEAL REFLUX DISEASE
     Route: 048

REACTIONS (2)
  - Aortic aneurysm rupture [Fatal]
  - Confusional state [Not Recovered/Not Resolved]
